FAERS Safety Report 6378858-9 (Version None)
Quarter: 2009Q3

REPORT INFORMATION
  Report Type: 
  Country: None (occurrence: None)
  Receive Date: 20090928
  Receipt Date: 20090721
  Transmission Date: 20100115
  Serious: No
  Sender: FDA-Public Use
  Company Number: US-BAYER-200927947NA

PATIENT
  Sex: Female

DRUGS (1)
  1. MIRENA [Suspect]
     Indication: VAGINAL HAEMORRHAGE
     Dosage: CONTINUOUS
     Route: 015

REACTIONS (4)
  - DEPRESSION [None]
  - DIARRHOEA [None]
  - GASTRIC DISORDER [None]
  - VOMITING [None]
